FAERS Safety Report 12477805 (Version 2)
Quarter: 2016Q3

REPORT INFORMATION
  Report Type: Report from Study
  Country: CA (occurrence: CA)
  Receive Date: 20160617
  Receipt Date: 20160713
  Transmission Date: 20161109
  Serious: Yes (Death, Hospitalization, Other)
  Sender: FDA-Public Use
  Company Number: CA-009507513-1606CAN006097

PATIENT
  Age: 63 Year
  Sex: Male
  Weight: 84.7 kg

DRUGS (1)
  1. PEMBROLIZUMAB. [Suspect]
     Active Substance: PEMBROLIZUMAB
     Indication: METASTATIC MALIGNANT MELANOMA
     Dosage: 169 MG (STRENGTH: 2 MG/KG), Q3W
     Route: 042
     Dates: start: 20160505, end: 2016

REACTIONS (5)
  - Vomiting [Unknown]
  - Confusional state [Unknown]
  - Brain neoplasm [Unknown]
  - Death [Fatal]
  - Hip arthroplasty [Unknown]

NARRATIVE: CASE EVENT DATE: 2016
